FAERS Safety Report 21991045 (Version 3)
Quarter: 2023Q1

REPORT INFORMATION
  Report Type: Spontaneous
  Country: US (occurrence: US)
  Receive Date: 20230214
  Receipt Date: 20230310
  Transmission Date: 20230418
  Serious: No
  Sender: FDA-Public Use
  Company Number: US-SA-SAC20230210000255

PATIENT
  Age: 16 Year
  Sex: Male

DRUGS (22)
  1. DUPIXENT [Suspect]
     Active Substance: DUPILUMAB
     Indication: Dermatitis atopic
     Dosage: 300 MG, QOW
     Route: 058
     Dates: start: 20210624
  2. ADVAIR HFA [Concomitant]
     Active Substance: FLUTICASONE PROPIONATE\SALMETEROL XINAFOATE
     Dosage: ADVAIR HFA AER 45/21
  3. AZELASTINE [Concomitant]
     Active Substance: AZELASTINE
  4. CETIRIZINE [Concomitant]
     Active Substance: CETIRIZINE HYDROCHLORIDE
  5. CLOTRIMAZOLE [Concomitant]
     Active Substance: CLOTRIMAZOLE
  6. CROMOLYN SODIUM [Concomitant]
     Active Substance: CROMOLYN SODIUM
  7. CYCLOSPORINE [Concomitant]
     Active Substance: CYCLOSPORINE
  8. EUCRISA [Concomitant]
     Active Substance: CRISABOROLE
  9. FLUCONAZOLE [Concomitant]
     Active Substance: FLUCONAZOLE
  10. GENGRAF [Concomitant]
     Active Substance: CYCLOSPORINE
  11. MOMETASONE [Concomitant]
     Active Substance: MOMETASONE
  12. NASONEX [Concomitant]
     Active Substance: MOMETASONE FUROATE
     Dosage: NASONEX SPR 50MCG/AC
  13. OLOPATADINE [Concomitant]
     Active Substance: OLOPATADINE
  14. PAZEO [Concomitant]
     Active Substance: OLOPATADINE HYDROCHLORIDE
  15. TACROLIMUS [Concomitant]
     Active Substance: TACROLIMUS
  16. TERBINAFINE [Concomitant]
     Active Substance: TERBINAFINE
  17. CETIRIZINE HYDROCHLORIDE [Concomitant]
     Active Substance: CETIRIZINE HYDROCHLORIDE
  18. PREDNISONE [Concomitant]
     Active Substance: PREDNISONE
  19. HYDROXYZINE HYDROCHLORIDE [Concomitant]
     Active Substance: HYDROXYZINE HYDROCHLORIDE
  20. HYDROXYZINE HYDROCHLORIDE [Concomitant]
     Active Substance: HYDROXYZINE HYDROCHLORIDE
  21. DERMA SMOOTH [Concomitant]
  22. ALLERGY [DIPHENHYDRAMINE HYDROCHLORIDE] [Concomitant]

REACTIONS (13)
  - Dyspnoea [Not Recovered/Not Resolved]
  - Throat tightness [Not Recovered/Not Resolved]
  - Infection [Recovering/Resolving]
  - Diarrhoea [Recovering/Resolving]
  - Oropharyngeal pain [Recovering/Resolving]
  - Urticaria [Not Recovered/Not Resolved]
  - Eye irritation [Recovering/Resolving]
  - Dermatitis atopic [Recovering/Resolving]
  - Discomfort [Recovering/Resolving]
  - Rash [Recovering/Resolving]
  - Sleep disorder [Unknown]
  - Dry eye [Unknown]
  - Drug ineffective [Unknown]

NARRATIVE: CASE EVENT DATE: 20221101
